FAERS Safety Report 6171174-X (Version None)
Quarter: 2009Q2

REPORT INFORMATION
  Report Type: 
  Country: None (occurrence: None)
  Receive Date: 20090428
  Receipt Date: 20090428
  Transmission Date: 20091009
  Serious: Yes (Hospitalization)
  Sender: FDA-Public Use
  Company Number: None

PATIENT
  Age: 20 Year
  Sex: Female
  Weight: 54.4316 kg

DRUGS (2)
  1. YAZ [Suspect]
     Indication: ACNE
     Dates: start: 20090419, end: 20090424
  2. YAZ [Suspect]
     Indication: MENSTRUAL DISORDER
     Dates: start: 20090419, end: 20090424

REACTIONS (1)
  - DEEP VEIN THROMBOSIS [None]
